FAERS Safety Report 9600175 (Version 1)
Quarter: 2013Q4

REPORT INFORMATION
  Report Type: Spontaneous
  Country: US (occurrence: US)
  Receive Date: 20131004
  Receipt Date: 20131004
  Transmission Date: 20140711
  Serious: No
  Sender: FDA-Public Use
  Company Number: US-AMGEN-USASP2013033073

PATIENT
  Age: 65 Year
  Sex: Male
  Weight: 108.84 kg

DRUGS (16)
  1. ENBREL [Suspect]
     Indication: PRODUCT USED FOR UNKNOWN INDICATION
     Dosage: 50 MG, QWK
     Route: 058
  2. FOLIC ACID [Concomitant]
     Dosage: UNK
  3. SERTRALINE [Concomitant]
     Dosage: 25 MG, UNK
  4. ATENOLOL [Concomitant]
     Dosage: 25 MG, UNK
  5. GLIMEPIRIDE [Concomitant]
     Dosage: 1 MG, UNK
  6. PRAVASTATIN [Concomitant]
     Dosage: 10 MG, UNK
  7. MULTIVITAMINS, PLAIN [Concomitant]
     Dosage: UNK
  8. LISINOPRIL [Concomitant]
     Dosage: 10 MG, UNK
  9. CALCIUM [Concomitant]
     Dosage: 500 UNK, UNK
  10. HYDROCODONE/APAP [Concomitant]
     Dosage: 10-300 MG, UNK
  11. ALEVE [Concomitant]
     Dosage: 220 MG, UNK
  12. ASPIRIN [Concomitant]
     Dosage: 81 MG, UNK
  13. ZOLPIDEM [Concomitant]
     Dosage: 10 MG, UNK
  14. CLOTRIMAZOLE W/BETAMETHASONE DIPROPIONAT [Concomitant]
     Dosage: UNK
  15. FLUTICASONE [Concomitant]
     Dosage: 50 MUG, UNK
  16. VICTOZA [Concomitant]
     Dosage: UNK, 18 MG/ 3 ML

REACTIONS (1)
  - Arthralgia [Unknown]
